FAERS Safety Report 5842956-6 (Version None)
Quarter: 2008Q3

REPORT INFORMATION
  Report Type: 
  Country: None (occurrence: None)
  Receive Date: 20080811
  Receipt Date: 20080728
  Transmission Date: 20090109
  Serious: Yes (Death, Hospitalization)
  Sender: FDA-Public Use
  Company Number: CERZ-1000102

PATIENT
  Age: 4 Week
  Sex: Male
  Weight: 3 kg

DRUGS (3)
  1. CEREZYME [Suspect]
     Indication: GAUCHER'S DISEASE
     Dosage: 200 U, Q2W, INTRAVENOUS
     Route: 042
     Dates: start: 20080207, end: 20080219
  2. DOPAMINE HCL [Concomitant]
  3. FUROSEMIDE (FUROSMIDE) [Concomitant]

REACTIONS (13)
  - ALANINE AMINOTRANSFERASE INCREASED [None]
  - ASPARTATE AMINOTRANSFERASE INCREASED [None]
  - BLOOD ALKALINE PHOSPHATASE INCREASED [None]
  - BLOOD CREATININE INCREASED [None]
  - BLOOD LACTATE DEHYDROGENASE INCREASED [None]
  - CONDITION AGGRAVATED [None]
  - DISEASE PROGRESSION [None]
  - GAUCHER'S DISEASE [None]
  - HAEMATOCRIT DECREASED [None]
  - HAEMOGLOBIN DECREASED [None]
  - NEONATAL RESPIRATORY FAILURE [None]
  - OEDEMA NEONATAL [None]
  - RENAL FAILURE NEONATAL [None]
